FAERS Safety Report 9329753 (Version 1)
Quarter: 2013Q2

REPORT INFORMATION
  Report Type: Spontaneous
  Country: US (occurrence: US)
  Receive Date: 20130604
  Receipt Date: 20130604
  Transmission Date: 20140414
  Serious: No
  Sender: FDA-Public Use
  Company Number: US-SANOFI-AVENTIS-2013SA002049

PATIENT
  Age: 66 Year
  Sex: Male

DRUGS (4)
  1. LANTUS SOLOSTAR [Suspect]
  2. SOLOSTAR [Suspect]
  3. GLIPIZIDE [Concomitant]
  4. GLUCOTROL [Concomitant]

REACTIONS (7)
  - Blood glucose increased [Unknown]
  - Glycosylated haemoglobin increased [Unknown]
  - Blood glucose decreased [Unknown]
  - Fall [Unknown]
  - Palpitations [Unknown]
  - Diarrhoea [Unknown]
  - Loss of consciousness [Unknown]
